FAERS Safety Report 19520766 (Version 1)
Quarter: 2021Q3

REPORT INFORMATION
  Report Type: Spontaneous
  Country: NL (occurrence: NL)
  Receive Date: 20210712
  Receipt Date: 20210712
  Transmission Date: 20211014
  Serious: Yes (Death, Life-Threatening, Hospitalization, Other)
  Sender: FDA-Public Use
  Company Number: NL-PFIZER INC-2021792780

PATIENT
  Age: 30 Year
  Sex: Female
  Weight: 90 kg

DRUGS (11)
  1. COLECALCIFEROL [Concomitant]
     Active Substance: CHOLECALCIFEROL
     Dosage: 5600 UNITS
  2. NITROFURANTOINE [Concomitant]
     Active Substance: NITROFURANTOIN
     Dosage: 50 MG
  3. LOPROX [Concomitant]
     Active Substance: CICLOPIROX\CICLOPIROX OLAMINE
     Dosage: 10 MG/G
  4. PROTOPIC [Concomitant]
     Active Substance: TACROLIMUS
     Dosage: 1 MG/G
  5. EUTHYROX [Concomitant]
     Active Substance: LEVOTHYROXINE SODIUM
     Dosage: 50 UG
  6. MODERNA COVID?19 VACCINE [Concomitant]
     Active Substance: CX-024414
     Indication: COVID-19 IMMUNISATION
     Dosage: UNK UNK, SINGLE
     Dates: start: 20210224, end: 20210224
  7. MACROGOL [Concomitant]
     Active Substance: POLYETHYLENE GLYCOLS
     Dosage: POWDER FOR DRINK
  8. SPIRONOLACTON [Concomitant]
     Active Substance: SPIRONOLACTONE
     Dosage: 12.5 MG
  9. ETHINYLESTRADIOL/LEVONORGESTREL [Suspect]
     Active Substance: ETHINYL ESTRADIOL\LEVONORGESTREL
     Indication: MENSTRUAL DISORDER
     Dosage: 1 DF, 1X/DAY
     Dates: start: 2007, end: 20210611
  10. DOMPERIDON [DOMPERIDONE] [Concomitant]
     Active Substance: DOMPERIDONE
     Dosage: 10 MG
  11. MICONAZOL [MICONAZOLE] [Concomitant]
     Active Substance: MICONAZOLE
     Dosage: 20 MG/G

REACTIONS (3)
  - Intestinal ischaemia [Fatal]
  - Off label use [Unknown]
  - Venous thrombosis [Fatal]

NARRATIVE: CASE EVENT DATE: 2007
